FAERS Safety Report 8114323-6 (Version None)
Quarter: 2012Q1

REPORT INFORMATION
  Report Type: 
  Country: None (occurrence: None)
  Receive Date: 20120206
  Receipt Date: 20120127
  Transmission Date: 20120608
  Serious: Yes (Hospitalization)
  Sender: FDA-Public Use
  Company Number: US-BIOGENIDEC-2011BI032642

PATIENT
  Age: 58 Year
  Sex: Female

DRUGS (1)
  1. TYSABRI [Suspect]
     Indication: MULTIPLE SCLEROSIS
     Route: 042
     Dates: start: 20110816, end: 20110816

REACTIONS (6)
  - HEADACHE [None]
  - MEMORY IMPAIRMENT [None]
  - BACK PAIN [None]
  - FATIGUE [None]
  - HYPERTENSION [None]
  - GENERAL SYMPTOM [None]
